FAERS Safety Report 10718171 (Version 1)
Quarter: 2015Q1

REPORT INFORMATION
  Report Type: Spontaneous
  Country: US (occurrence: US)
  Receive Date: 20150118
  Receipt Date: 20150118
  Transmission Date: 20150721
  Serious: No
  Sender: FDA-Public Use
  Company Number: US-ASTRAZENECA-2015SE00790

PATIENT
  Age: 53 Year
  Sex: Female
  Weight: 36.3 kg

DRUGS (5)
  1. MEGESTROL ACETATE. [Concomitant]
     Active Substance: MEGESTROL ACETATE
     Indication: WEIGHT INCREASED
     Route: 048
     Dates: start: 201408
  2. VENTOLLIN [Concomitant]
     Indication: CHRONIC OBSTRUCTIVE PULMONARY DISEASE
     Dosage: AS REQUIRED
     Route: 055
  3. SYMBICORT [Suspect]
     Active Substance: BUDESONIDE\FORMOTEROL FUMARATE DIHYDRATE
     Indication: CHRONIC OBSTRUCTIVE PULMONARY DISEASE
     Dosage: 160 MCG, 2 PUFFS BID
     Route: 055
  4. AMLODIPINE BENAZ [Concomitant]
     Indication: BLOOD PRESSURE ABNORMAL
     Dosage: AS REQUIRED
     Route: 048
     Dates: start: 2012
  5. SYMBICORT [Suspect]
     Active Substance: BUDESONIDE\FORMOTEROL FUMARATE DIHYDRATE
     Indication: CHRONIC OBSTRUCTIVE PULMONARY DISEASE
     Dosage: 80 MCG, 2 PUFFS BID
     Route: 055

REACTIONS (3)
  - Drug dose omission [Recovered/Resolved with Sequelae]
  - Off label use [Recovered/Resolved]
  - Dyspnoea [Recovered/Resolved with Sequelae]

NARRATIVE: CASE EVENT DATE: 2014
